FAERS Safety Report 20491833 (Version 2)
Quarter: 2022Q1

REPORT INFORMATION
  Report Type: Spontaneous
  Country: DE (occurrence: DE)
  Receive Date: 20220218
  Receipt Date: 20220304
  Transmission Date: 20220423
  Serious: Yes (Other)
  Sender: FDA-Public Use
  Company Number: DE-PFIZER INC-202200235766

PATIENT
  Sex: Female

DRUGS (1)
  1. TAVOR (LORAZEPAM) [Suspect]
     Active Substance: LORAZEPAM
     Dosage: 2.5 MG

REACTIONS (3)
  - Diaphragmatic rupture [Unknown]
  - Incorrect product administration duration [Unknown]
  - Gastrooesophageal reflux disease [Unknown]
